FAERS Safety Report 5698261-4 (Version None)
Quarter: 2008Q2

REPORT INFORMATION
  Report Type: 
  Country: None (occurrence: None)
  Receive Date: 20080408
  Receipt Date: 20080327
  Transmission Date: 20081010
  Serious: Yes (Other)
  Sender: FDA-Public Use
  Company Number: US-PFIZER INC-2008027842

PATIENT
  Sex: Female
  Weight: 68.181 kg

DRUGS (6)
  1. CHANTIX [Suspect]
     Indication: SMOKING CESSATION THERAPY
     Dates: start: 20080125, end: 20080130
  2. NEURONTIN [Concomitant]
     Route: 048
  3. PROTONIX [Concomitant]
     Route: 048
  4. ZYRTEC [Concomitant]
     Route: 048
  5. FLUOXETINE [Concomitant]
     Route: 048
  6. AMITRIPTYLINE HYDROCHLORIDE [Concomitant]
     Route: 048

REACTIONS (2)
  - ILL-DEFINED DISORDER [None]
  - MALAISE [None]
